FAERS Safety Report 10153249 (Version 1)
Quarter: 2014Q2

REPORT INFORMATION
  Report Type: Spontaneous
  Country: GR (occurrence: GR)
  Receive Date: 20140505
  Receipt Date: 20140505
  Transmission Date: 20141212
  Serious: Yes (Hospitalization)
  Sender: FDA-Public Use
  Company Number: PHHY2014GR053849

PATIENT
  Age: 87 Year
  Sex: Male

DRUGS (3)
  1. EUCREAS [Suspect]
     Indication: TYPE 2 DIABETES MELLITUS
     Dosage: 1 DF, UNK
  2. PARACETAMOL [Suspect]
     Dosage: 80 G, UNK
  3. HYDROXYZINE [Suspect]
     Dosage: 525 MG, UNK

REACTIONS (5)
  - Poisoning [Recovered/Resolved]
  - Respiratory alkalosis [Recovered/Resolved]
  - Lactic acidosis [Recovered/Resolved]
  - Hypoglycaemia [Recovered/Resolved]
  - Intentional overdose [Unknown]
